FAERS Safety Report 7445182-2 (Version None)
Quarter: 2011Q2

REPORT INFORMATION
  Report Type: 
  Country: None (occurrence: None)
  Receive Date: 20110429
  Receipt Date: 20110420
  Transmission Date: 20111010
  Serious: Yes (Other)
  Sender: FDA-Public Use
  Company Number: IE-JNJFOC-20110409701

PATIENT
  Age: 54 Year
  Sex: Male
  Weight: 64 kg

DRUGS (4)
  1. CLONFOLIC [Concomitant]
     Indication: FOLATE DEFICIENCY
  2. METHOTREXATE [Concomitant]
     Indication: PSORIATIC ARTHROPATHY
  3. DELTACORTRIL [Concomitant]
     Indication: PSORIATIC ARTHROPATHY
  4. SIMPONI [Suspect]
     Indication: PSORIATIC ARTHROPATHY
     Route: 030

REACTIONS (1)
  - BLOOD CHOLESTEROL INCREASED [None]
